FAERS Safety Report 17793850 (Version 1)
Quarter: 2020Q2

REPORT INFORMATION
  Report Type: Spontaneous
  Country: US (occurrence: US)
  Receive Date: 20200515
  Receipt Date: 20200515
  Transmission Date: 20200714
  Serious: No
  Sender: FDA-Public Use
  Company Number: US-BAYER-2020-076811

PATIENT
  Age: 62 Year
  Sex: Female

DRUGS (3)
  1. MIRENA [Suspect]
     Active Substance: LEVONORGESTREL
     Indication: SMEAR CERVIX ABNORMAL
     Dosage: 20 ?G PER DAY CONTINUOUSLY
     Route: 015
     Dates: start: 2020
  2. MIRENA [Suspect]
     Active Substance: LEVONORGESTREL
     Indication: PROPHYLAXIS
  3. MIRENA [Suspect]
     Active Substance: LEVONORGESTREL
     Indication: PROPHYLAXIS

REACTIONS (3)
  - Weight increased [Not Recovered/Not Resolved]
  - Off label use of device [None]
  - Device use issue [None]

NARRATIVE: CASE EVENT DATE: 2020
